FAERS Safety Report 16001570 (Version 7)
Quarter: 2022Q4

REPORT INFORMATION
  Report Type: Spontaneous
  Country: US (occurrence: None)
  Receive Date: 20190225
  Receipt Date: 20221228
  Transmission Date: 20230113
  Serious: Yes (Hospitalization, Other)
  Sender: FDA-Public Use
  Company Number: 2018SF64993

PATIENT
  Age: 79 Year
  Sex: Female
  Weight: 68.9 kg

DRUGS (61)
  1. NEXIUM 24HR [Suspect]
     Active Substance: ESOMEPRAZOLE MAGNESIUM
     Route: 048
     Dates: start: 20060101, end: 20171231
  2. NEXIUM 24HR [Suspect]
     Active Substance: ESOMEPRAZOLE MAGNESIUM
     Route: 048
  3. NEXIUM 24HR [Suspect]
     Active Substance: ESOMEPRAZOLE MAGNESIUM
     Route: 048
     Dates: start: 20130304, end: 20161205
  4. NEXIUM 24HR [Suspect]
     Active Substance: ESOMEPRAZOLE MAGNESIUM
     Dosage: GENERIC
     Route: 065
     Dates: start: 20170830, end: 20180303
  5. NEXIUM [Suspect]
     Active Substance: ESOMEPRAZOLE MAGNESIUM
     Indication: Gastrooesophageal reflux disease
     Route: 048
     Dates: start: 20130306, end: 20161205
  6. NEXIUM [Suspect]
     Active Substance: ESOMEPRAZOLE MAGNESIUM
     Indication: Gastrooesophageal reflux disease
     Dosage: GENERIC, 40 MG DAILY
     Route: 065
     Dates: start: 20130830, end: 20161205
  7. NEXIUM [Suspect]
     Active Substance: ESOMEPRAZOLE MAGNESIUM
     Indication: Gastrooesophageal reflux disease
     Route: 048
     Dates: start: 20140728
  8. NEXIUM [Suspect]
     Active Substance: ESOMEPRAZOLE MAGNESIUM
     Indication: Gastrooesophageal reflux disease
     Route: 048
     Dates: start: 20140502
  9. PRILOSEC [Suspect]
     Active Substance: OMEPRAZOLE MAGNESIUM
     Route: 048
  10. PRILOSEC OTC [Suspect]
     Active Substance: OMEPRAZOLE MAGNESIUM
     Route: 048
  11. PREVACID [Suspect]
     Active Substance: LANSOPRAZOLE
     Route: 065
  12. PREVACID 24 HR [Suspect]
     Active Substance: LANSOPRAZOLE
     Route: 065
  13. AMLODIPINE [Concomitant]
     Active Substance: AMLODIPINE BESYLATE
     Indication: Hypertension
  14. ATORVASTATIN [Concomitant]
     Active Substance: ATORVASTATIN
     Indication: Blood cholesterol increased
  15. LISINOPRIL [Concomitant]
     Active Substance: LISINOPRIL
     Indication: Hypertension
  16. NAPROXEN [Concomitant]
     Active Substance: NAPROXEN
     Indication: Pain
  17. NAPROXEN [Concomitant]
     Active Substance: NAPROXEN
     Indication: Pyrexia
  18. LANTUS [Concomitant]
     Active Substance: INSULIN GLARGINE
     Indication: Diabetes mellitus
  19. TRAMADOL [Concomitant]
     Active Substance: TRAMADOL
     Indication: Pain
  20. AMLODIPINE BESYLATE [Concomitant]
     Active Substance: AMLODIPINE BESYLATE
  21. GLIPIZIDE [Concomitant]
     Active Substance: GLIPIZIDE
  22. ALENDRONATE SODIUM [Concomitant]
     Active Substance: ALENDRONATE SODIUM
  23. TRAZODONE [Concomitant]
     Active Substance: TRAZODONE HYDROCHLORIDE
  24. METOPROLOL TARTRATE [Concomitant]
     Active Substance: METOPROLOL TARTRATE
  25. GABAPENTIN [Concomitant]
     Active Substance: GABAPENTIN
  26. ALENDRONATE [Concomitant]
     Active Substance: ALENDRONATE SODIUM
  27. DELZICOL [Concomitant]
     Active Substance: MESALAMINE
  28. FERROUS SULFATE [Concomitant]
     Active Substance: FERROUS SULFATE
  29. SODIUM BICARBONATE [Concomitant]
     Active Substance: SODIUM BICARBONATE
  30. BISACODYL [Concomitant]
     Active Substance: BISACODYL
  31. ASPIRIN [Concomitant]
     Active Substance: ASPIRIN
  32. INSULIN NOS [Concomitant]
     Active Substance: INSULIN NOS
  33. CALCIUM [Concomitant]
     Active Substance: CALCIUM
  34. HYDRALAZINE [Concomitant]
     Active Substance: HYDRALAZINE HYDROCHLORIDE
  35. LASIX [Concomitant]
     Active Substance: FUROSEMIDE
  36. LORATADINE [Concomitant]
     Active Substance: LORATADINE
  37. VITAMINS [Concomitant]
     Active Substance: VITAMINS
  38. PROBIOTICS NOS [Concomitant]
     Active Substance: PROBIOTICS NOS
  39. MESALAMINE [Concomitant]
     Active Substance: MESALAMINE
  40. INSULIN LISPRO [Concomitant]
     Active Substance: INSULIN LISPRO
  41. INSULIN GLARGINE [Concomitant]
     Active Substance: INSULIN GLARGINE
  42. NITROGLYCERIN [Concomitant]
     Active Substance: NITROGLYCERIN
  43. TAMIFLU [Concomitant]
     Active Substance: OSELTAMIVIR PHOSPHATE
  44. ACETAMINOPHEN\HYDROCODONE BITARTRATE [Concomitant]
     Active Substance: ACETAMINOPHEN\HYDROCODONE BITARTRATE
  45. GLYBURIDE\METFORMIN [Concomitant]
     Active Substance: GLYBURIDE\METFORMIN
  46. ASACOL [Concomitant]
     Active Substance: MESALAMINE
  47. CIPROFLOXACIN HYDROCHLORIDE [Concomitant]
     Active Substance: CIPROFLOXACIN HYDROCHLORIDE
  48. METRONIDAZOLE [Concomitant]
     Active Substance: METRONIDAZOLE
  49. KETOCONAZOLE [Concomitant]
     Active Substance: KETOCONAZOLE
  50. BENZONATATE [Concomitant]
     Active Substance: BENZONATATE
  51. OYSCO [Concomitant]
  52. CEPHALEXIN [Concomitant]
     Active Substance: CEPHALEXIN
  53. AMOXICILLIN\CLAVULANATE POTASSIUM [Concomitant]
     Active Substance: AMOXICILLIN\CLAVULANATE POTASSIUM
  54. GAVILYTE G [Concomitant]
     Active Substance: POLYETHYLENE GLYCOL 3350\POTASSIUM CHLORIDE\SODIUM BICARBONATE\SODIUM CHLORIDE\SODIUM SULFATE
  55. AZITHROMYCIN [Concomitant]
     Active Substance: AZITHROMYCIN
  56. IOPHEN-C [Concomitant]
  57. CAPSAICIN [Concomitant]
     Active Substance: CAPSAICIN
  58. HYDROXYZINE [Concomitant]
     Active Substance: HYDROXYZINE HYDROCHLORIDE
  59. CETIRIZINE [Concomitant]
     Active Substance: CETIRIZINE HYDROCHLORIDE
  60. HYDROCORTISONE [Concomitant]
     Active Substance: HYDROCORTISONE
  61. NYSTATIN [Concomitant]
     Active Substance: NYSTATIN

REACTIONS (7)
  - Chronic kidney disease [Not Recovered/Not Resolved]
  - End stage renal disease [Not Recovered/Not Resolved]
  - Renal injury [Unknown]
  - Acute kidney injury [Unknown]
  - Chronic kidney disease-mineral and bone disorder [Unknown]
  - Renal failure [Unknown]
  - Nephrogenic anaemia [Unknown]

NARRATIVE: CASE EVENT DATE: 20130101
